FAERS Safety Report 6143448-X (Version None)
Quarter: 2009Q2

REPORT INFORMATION
  Report Type: 
  Country: None (occurrence: None)
  Receive Date: 20090403
  Receipt Date: 20090326
  Transmission Date: 20091009
  Serious: Yes (Other)
  Sender: FDA-Public Use
  Company Number: PHHY2008GB27905

PATIENT
  Sex: Female

DRUGS (1)
  1. CLOZARIL [Suspect]
     Indication: SCHIZOPHRENIA
     Dosage: 475 MG, QD
     Route: 048
     Dates: start: 20021030

REACTIONS (3)
  - CONSTIPATION [None]
  - HAEMOGLOBIN DECREASED [None]
  - INTESTINAL HAEMORRHAGE [None]
